FAERS Safety Report 9421687 (Version 1)
Quarter: 2013Q3

REPORT INFORMATION
  Report Type: Report from Study
  Country: US (occurrence: US)
  Receive Date: 20130726
  Receipt Date: 20130726
  Transmission Date: 20140515
  Serious: Yes (Hospitalization)
  Sender: FDA-Public Use
  Company Number: US-009507513-1307USA007381

PATIENT
  Age: 57 Year
  Sex: Female
  Weight: 79.82 kg

DRUGS (14)
  1. BLINDED EZETIMIBE (+) SIMVASTATIN [Suspect]
     Indication: ACUTE CORONARY SYNDROME
     Dosage: UNK
     Route: 048
     Dates: start: 20060914
  2. BLINDED PLACEBO [Suspect]
     Indication: ACUTE CORONARY SYNDROME
     Dosage: UNK
     Route: 048
     Dates: start: 20060914
  3. BLINDED POST TRIAL THERAPY [Suspect]
     Indication: ACUTE CORONARY SYNDROME
     Dosage: UNK
     Route: 048
     Dates: start: 20060914
  4. BLINDED PRE TRIAL THERAPY [Suspect]
     Indication: ACUTE CORONARY SYNDROME
     Dosage: UNK
     Route: 048
     Dates: start: 20060914
  5. BLINDED SIMVASTATIN [Suspect]
     Indication: ACUTE CORONARY SYNDROME
     Dosage: UNK
     Route: 048
     Dates: start: 20060914
  6. BLINDED THERAPY [Suspect]
     Indication: ACUTE CORONARY SYNDROME
     Dosage: UNK
     Route: 048
     Dates: start: 20060914
  7. LISINOPRIL [Suspect]
     Dosage: 10 MG DAILY
     Route: 048
     Dates: start: 20060911
  8. ASPIRIN [Concomitant]
     Dosage: 81 MG DDAILY
     Route: 048
     Dates: start: 20090911
  9. XANAX [Concomitant]
     Dosage: 0.25 MG DAILY
     Route: 048
     Dates: start: 20060911
  10. ZOLOFT [Concomitant]
     Dosage: 50 MG DAILY
     Route: 048
     Dates: start: 20060911
  11. IBUPROFEN [Concomitant]
     Dosage: 200 MG DAILY
     Route: 048
     Dates: start: 20060911
  12. AMBIEN [Concomitant]
     Dosage: 10 MG DAILY
     Route: 048
     Dates: start: 20060911
  13. METOPROLOL [Concomitant]
     Dosage: 3.125 MG DAILY
     Route: 048
     Dates: start: 20060911
  14. RANITIDINE [Concomitant]
     Dosage: 150 MG DAILY
     Route: 048
     Dates: start: 20120928

REACTIONS (1)
  - Humerus fracture [Recovered/Resolved]
